FAERS Safety Report 10312051 (Version 1)
Quarter: 2014Q3

REPORT INFORMATION
  Report Type: Spontaneous
  Country: CA (occurrence: None)
  Receive Date: 20140715
  Receipt Date: 20140715
  Transmission Date: 20150326
  Serious: Yes (Hospitalization, Other)
  Sender: FDA-Public Use
  Company Number: AXC-2014-000426

PATIENT
  Age: 66 Year
  Sex: Male
  Weight: 71.2 kg

DRUGS (7)
  1. HEPATOL (HEPATOL) CAPSULE [Concomitant]
  2. PANTOLOC (PANTOPRAZOLE SODIUM SESQUIHYDRATE) ENTERIC TABLET [Concomitant]
  3. TYLENOL ARTHRITIS PAIN (PARACETAMOL) SLOW RELEASE TABLET [Concomitant]
  4. SALOFALK (MESALAMINE) UNKNOWN [Suspect]
     Active Substance: MESALAMINE
     Indication: PRODUCT USED FOR UNKNOWN INDICATION
     Route: 048
  5. IMURAN [Suspect]
     Active Substance: AZATHIOPRINE
     Indication: PRODUCT USED FOR UNKNOWN INDICATION
     Route: 048
  6. AVAPRO (IRBESARTAN) TABLET [Concomitant]
  7. ATIVAN (LORAZEPAM) UNKNOWN [Concomitant]

REACTIONS (4)
  - Diarrhoea [None]
  - Pancreatitis [None]
  - Vomiting [None]
  - Abdominal pain upper [None]
